FAERS Safety Report 8619696-3 (Version None)
Quarter: 2012Q3

REPORT INFORMATION
  Report Type: 
  Country: None (occurrence: None)
  Receive Date: 20120816
  Receipt Date: 20120816
  Transmission Date: 20120928
  Serious: No
  Sender: FDA-Public Use
  Company Number: None

PATIENT
  Age: 60 Year
  Sex: Male
  Weight: 130.6359 kg

DRUGS (1)
  1. CRESTOR [Suspect]
     Indication: ARTERIOSCLEROSIS
     Dosage: 1 DAILY PO
     Route: 048
     Dates: start: 20120627, end: 20120801

REACTIONS (1)
  - MYALGIA [None]
